FAERS Safety Report 20151379 (Version 2)
Quarter: 2022Q1

REPORT INFORMATION
  Report Type: Spontaneous
  Country: JP (occurrence: JP)
  Receive Date: 20211206
  Receipt Date: 20220208
  Transmission Date: 20220423
  Serious: No
  Sender: FDA-Public Use
  Company Number: JP-PFIZER INC-202101637409

PATIENT
  Sex: Female

DRUGS (1)
  1. NAFARELIN ACETATE [Suspect]
     Active Substance: NAFARELIN ACETATE
     Dosage: UNK
     Dates: end: 20210424

REACTIONS (1)
  - Menstruation irregular [Unknown]
